FAERS Safety Report 24607965 (Version 1)
Quarter: 2024Q4

REPORT INFORMATION
  Report Type: Spontaneous
  Country: US (occurrence: US)
  Receive Date: 20241112
  Receipt Date: 20241112
  Transmission Date: 20250115
  Serious: Yes (Death, Hospitalization)
  Sender: SERVIER
  Company Number: US-SERVIER-S24014463

PATIENT

DRUGS (1)
  1. TIBSOVO [Suspect]
     Active Substance: IVOSIDENIB
     Indication: Acute myeloid leukaemia
     Dosage: UNK
     Route: 048
     Dates: start: 2024, end: 2024

REACTIONS (1)
  - Differentiation syndrome [Fatal]

NARRATIVE: CASE EVENT DATE: 20240101
